FAERS Safety Report 5862859-0 (Version None)
Quarter: 2008Q3

REPORT INFORMATION
  Report Type: 
  Country: None (occurrence: None)
  Receive Date: 20080828
  Receipt Date: 20080821
  Transmission Date: 20090109
  Serious: Yes (Death)
  Sender: FDA-Public Use
  Company Number: A0728174A

PATIENT
  Age: 69 Year
  Sex: Male
  Weight: 109.1 kg

DRUGS (4)
  1. AVANDIA [Suspect]
     Dates: start: 20000101, end: 20060602
  2. GLUCOPHAGE [Concomitant]
     Dates: start: 20001001, end: 20030301
  3. METFORMIN HCL [Concomitant]
     Dates: start: 20020401, end: 20060501
  4. AMARYL [Concomitant]
     Dates: start: 20040701, end: 20060501

REACTIONS (6)
  - ACUTE CORONARY SYNDROME [None]
  - ARTERIOSCLEROSIS [None]
  - BLOOD CHOLESTEROL INCREASED [None]
  - CORONARY ARTERY DISEASE [None]
  - HEART INJURY [None]
  - MYOCARDIAL INFARCTION [None]
